FAERS Safety Report 9645693 (Version 2)
Quarter: 2013Q4

REPORT INFORMATION
  Report Type: Spontaneous
  Country: FR (occurrence: FR)
  Receive Date: 20131025
  Receipt Date: 20131202
  Transmission Date: 20140711
  Serious: Yes (Death, Other)
  Sender: FDA-Public Use
  Company Number: FR-JNJFOC-20131013801

PATIENT
  Age: 88 Year
  Sex: Male

DRUGS (12)
  1. XARELTO [Suspect]
     Indication: CEREBROVASCULAR ACCIDENT PROPHYLAXIS
     Route: 048
     Dates: start: 20121030
  2. XARELTO [Suspect]
     Indication: ATRIAL FIBRILLATION
     Route: 048
     Dates: start: 20121030
  3. BURINEX [Concomitant]
     Route: 065
  4. COZAAR [Concomitant]
     Route: 065
  5. DIGOXIN [Concomitant]
     Route: 065
  6. ALDACTONE [Concomitant]
     Route: 065
  7. KALEROID [Concomitant]
     Route: 065
  8. CRESTOR [Concomitant]
     Route: 065
  9. JANUVIA [Concomitant]
     Route: 065
  10. DIAMICRON [Concomitant]
     Route: 065
  11. ALLOPURINOL [Concomitant]
     Route: 065
  12. INIPOMP [Concomitant]
     Indication: ABDOMINAL PAIN UPPER
     Route: 065

REACTIONS (1)
  - Cardio-respiratory arrest [Fatal]
